FAERS Safety Report 10099547 (Version 2)
Quarter: 2014Q3

REPORT INFORMATION
  Report Type: Report from Study
  Country: CA (occurrence: CA)
  Receive Date: 20140423
  Receipt Date: 20140903
  Transmission Date: 20150326
  Serious: Yes (Hospitalization)
  Sender: FDA-Public Use
  Company Number: CA-JNJFOC-20140414343

PATIENT
  Age: 52 Year
  Sex: Female
  Weight: 58.51 kg

DRUGS (2)
  1. REMICADE [Suspect]
     Active Substance: INFLIXIMAB
     Indication: PSORIASIS
     Route: 042
  2. REMICADE [Suspect]
     Active Substance: INFLIXIMAB
     Indication: PSORIASIS
     Route: 042
     Dates: start: 2013

REACTIONS (3)
  - Muscle rupture [Unknown]
  - Accident at work [Unknown]
  - Psoriasis [Unknown]

NARRATIVE: CASE EVENT DATE: 201310
